FAERS Safety Report 6977169-8 (Version None)
Quarter: 2010Q3

REPORT INFORMATION
  Report Type: 
  Country: None (occurrence: None)
  Receive Date: 20100910
  Receipt Date: 20100830
  Transmission Date: 20110219
  Serious: Yes (Hospitalization, Other)
  Sender: FDA-Public Use
  Company Number: US-PFIZER INC-2010099281

PATIENT
  Sex: Male
  Weight: 78.45 kg

DRUGS (8)
  1. GABAPENTIN [Suspect]
     Indication: TRIGEMINAL NEURALGIA
     Dosage: 600 MG DAILY, AT NIGHT
     Route: 048
  2. GABAPENTIN [Suspect]
     Dosage: 300 MG IN THE MORNING + AFTERNOON, 600MG AT NIGHT
  3. ZOLOFT [Concomitant]
     Indication: DEPRESSION
     Dosage: 150 MG, DAILY
     Route: 048
     Dates: start: 20090501
  4. ZOLOFT [Concomitant]
     Indication: ATTENTION DEFICIT/HYPERACTIVITY DISORDER
  5. ELAVIL [Concomitant]
     Indication: SLEEP DISORDER
     Dosage: 50 MG, DAILY
     Route: 048
  6. ELAVIL [Concomitant]
     Indication: TRIGEMINAL NEURALGIA
  7. PREVACID [Concomitant]
     Indication: PAIN
     Dosage: UNK; AS NEEDED
     Route: 048
  8. IBUPROFEN [Concomitant]
     Indication: PAIN
     Dosage: 800 MG, AS NEEDED
     Route: 048

REACTIONS (4)
  - DEPRESSION [None]
  - MENTAL DISORDER [None]
  - PAIN [None]
  - SUICIDE ATTEMPT [None]
